FAERS Safety Report 8010286-2 (Version None)
Quarter: 2011Q4

REPORT INFORMATION
  Report Type: 
  Country: None (occurrence: None)
  Receive Date: 20111221
  Receipt Date: 20111214
  Transmission Date: 20120403
  Serious: Yes (Hospitalization)
  Sender: FDA-Public Use
  Company Number: 2011SP045405

PATIENT
  Age: 26 Year
  Sex: Female

DRUGS (1)
  1. NUVARING [Suspect]
     Indication: CONTRACEPTION
     Dates: start: 20090601, end: 20110925

REACTIONS (3)
  - BRAIN OEDEMA [None]
  - INTRACRANIAL VENOUS SINUS THROMBOSIS [None]
  - EPILEPSY [None]
